FAERS Safety Report 8554866-4 (Version None)
Quarter: 2012Q3

REPORT INFORMATION
  Report Type: 
  Country: None (occurrence: None)
  Receive Date: 20120731
  Receipt Date: 20120730
  Transmission Date: 20120928
  Serious: Yes (Other)
  Sender: FDA-Public Use
  Company Number: AU-JNJFOC-20120712114

PATIENT
  Sex: Female

DRUGS (3)
  1. REMICADE [Suspect]
     Route: 042
     Dates: start: 20120720
  2. HUMIRA [Suspect]
     Indication: CROHN'S DISEASE
  3. REMICADE [Suspect]
     Indication: CROHN'S DISEASE
     Dosage: HAD BEEN ON REMICADE 18 MONTHS
     Route: 042

REACTIONS (4)
  - CARDIAC DISORDER [None]
  - INFLUENZA [None]
  - DYSPNOEA [None]
  - PSORIASIS [None]
